FAERS Safety Report 7100104-9 (Version None)
Quarter: 2010Q4

REPORT INFORMATION
  Report Type: 
  Country: None (occurrence: None)
  Receive Date: 20101112
  Receipt Date: 20091229
  Transmission Date: 20110411
  Serious: No
  Sender: FDA-Public Use
  Company Number: A0836867A

PATIENT
  Age: 14 Year
  Sex: Female

DRUGS (5)
  1. COREG [Suspect]
     Dosage: 3.125MG TWICE PER DAY
     Route: 048
     Dates: start: 20091227
  2. FUROSEMIDE [Concomitant]
  3. WARFARIN [Concomitant]
  4. ENALAPRIL MALEATE [Concomitant]
  5. PROTONIX [Concomitant]

REACTIONS (1)
  - BRAIN NATRIURETIC PEPTIDE INCREASED [None]
